FAERS Safety Report 4921987-4 (Version None)
Quarter: 2006Q1

REPORT INFORMATION
  Report Type: 
  Country: None (occurrence: None)
  Receive Date: 20060224
  Receipt Date: 20060131
  Transmission Date: 20060701
  Serious: Yes (Disabling)
  Sender: FDA-Public Use
  Company Number: PHHO2006HU01809

PATIENT
  Age: 72 Year
  Sex: Male
  Weight: 91 kg

DRUGS (3)
  1. FORADIL / FOR 258A / CGP 25827 [Suspect]
     Indication: CHRONIC OBSTRUCTIVE PULMONARY DISEASE
     Dosage: 12 UG BID
     Dates: start: 20050427, end: 20050803
  2. VENTOLIN [Concomitant]
  3. STEROIDS NOS [Concomitant]

REACTIONS (2)
  - ERYTHEMA [None]
  - RASH MACULO-PAPULAR [None]
